FAERS Safety Report 4492160-1 (Version None)
Quarter: 2004Q4

REPORT INFORMATION
  Report Type: 
  Country: None (occurrence: None)
  Receive Date: 20041103
  Receipt Date: 20041029
  Transmission Date: 20050328
  Serious: Yes (Hospitalization, Other)
  Sender: FDA-Public Use
  Company Number: US-GLAXOSMITHKLINE-A0532202A

PATIENT
  Age: 55 Year
  Sex: Female

DRUGS (2)
  1. IMITREX [Suspect]
     Indication: MIGRAINE
     Dosage: 50MG AS REQUIRED
     Route: 048
  2. ANTIHYPERTENSIVE [Concomitant]
     Indication: HYPERTENSION
     Route: 065

REACTIONS (6)
  - ARTERIOSPASM CORONARY [None]
  - CHEST DISCOMFORT [None]
  - DEPRESSION [None]
  - FEAR [None]
  - MYOCARDIAL INFARCTION [None]
  - VOMITING [None]
